FAERS Safety Report 8554020-6 (Version None)
Quarter: 2012Q3

REPORT INFORMATION
  Report Type: 
  Country: None (occurrence: None)
  Receive Date: 20120731
  Receipt Date: 20120723
  Transmission Date: 20120928
  Serious: Yes (Hospitalization)
  Sender: FDA-Public Use
  Company Number: JP-VERTEX PHARMACEUTICALS INC.-AE-2012-005677

PATIENT
  Age: 72 Year
  Sex: Male

DRUGS (12)
  1. REBETOL [Concomitant]
     Indication: HEPATITIS C
     Route: 048
     Dates: start: 20120202, end: 20120215
  2. REBETOL [Concomitant]
     Route: 048
     Dates: start: 20120517, end: 20120620
  3. REBETOL [Concomitant]
     Route: 048
     Dates: start: 20120621, end: 20120719
  4. ALLOPURINOL [Concomitant]
     Route: 048
     Dates: start: 20120308, end: 20120405
  5. TELAVIC (TELAPREVIR) [Suspect]
     Indication: HEPATITIS C
     Route: 048
     Dates: start: 20120202, end: 20120426
  6. REBETOL [Concomitant]
     Route: 048
     Dates: start: 20120216, end: 20120222
  7. REBETOL [Concomitant]
     Route: 048
     Dates: start: 20120223, end: 20120425
  8. HIRUDOID SOFT OINTMENT [Concomitant]
     Route: 061
  9. REBETOL [Concomitant]
     Route: 048
     Dates: start: 20120502, end: 20120516
  10. ALLOPURINOL [Concomitant]
     Route: 048
     Dates: start: 20120216, end: 20120307
  11. REBETOL [Concomitant]
     Route: 048
     Dates: start: 20120426, end: 20120501
  12. PEG-INTRON [Concomitant]
     Indication: HEPATITIS C
     Route: 058
     Dates: start: 20120202, end: 20120719

REACTIONS (1)
  - RASH PAPULAR [None]
